FAERS Safety Report 7221425-5 (Version None)
Quarter: 2010Q4

REPORT INFORMATION
  Report Type: 
  Country: None (occurrence: None)
  Receive Date: 20101230
  Receipt Date: 20101218
  Transmission Date: 20110411
  Serious: Yes (Hospitalization, Other)
  Sender: FDA-Public Use
  Company Number: 2010AP002671

PATIENT
  Age: 60 Year
  Sex: Male

DRUGS (4)
  1. LISINOPRIL [Suspect]
     Indication: HYPERTENSION
  2. INSULIN [Concomitant]
  3. CEFTRIAXONE [Concomitant]
  4. DOXYCYCLINE [Concomitant]

REACTIONS (1)
  - ERYTHRODERMIC PSORIASIS [None]
